FAERS Safety Report 9262882 (Version 1)
Quarter: 2013Q2

REPORT INFORMATION
  Report Type: Report from Study
  Country: BR (occurrence: BR)
  Receive Date: 20130430
  Receipt Date: 20130430
  Transmission Date: 20140414
  Serious: Yes (Other)
  Sender: FDA-Public Use
  Company Number: PHHY2013BR042364

PATIENT
  Sex: Female
  Weight: 46 kg

DRUGS (2)
  1. DIOVAN [Suspect]
     Indication: BLOOD PRESSURE
     Dosage: 80 MG, DAILY
     Route: 048
  2. LIVOLON [Concomitant]
     Indication: HORMONE REPLACEMENT THERAPY
     Dosage: 1.25 UG, DAILY
     Route: 048

REACTIONS (2)
  - Depression [Not Recovered/Not Resolved]
  - Memory impairment [Not Recovered/Not Resolved]
